FAERS Safety Report 5807772-X (Version None)
Quarter: 2008Q3

REPORT INFORMATION
  Report Type: 
  Country: None (occurrence: None)
  Receive Date: 20080711
  Receipt Date: 20080630
  Transmission Date: 20090109
  Serious: Yes (Disabling)
  Sender: FDA-Public Use
  Company Number: FR-PFIZER INC-2008055394

PATIENT
  Sex: Female

DRUGS (3)
  1. CHANTIX [Suspect]
     Indication: SMOKING CESSATION THERAPY
     Route: 048
     Dates: start: 20080616, end: 20080630
  2. ART 50 [Concomitant]
  3. ACECLOFENAC [Concomitant]

REACTIONS (6)
  - DYSPHAGIA [None]
  - FUNGAL INFECTION [None]
  - GLOSSITIS [None]
  - GLOSSODYNIA [None]
  - TONGUE DISCOLOURATION [None]
  - TONGUE DISORDER [None]
